FAERS Safety Report 5969381-1 (Version None)
Quarter: 2008Q4

REPORT INFORMATION
  Report Type: 
  Country: None (occurrence: None)
  Receive Date: 20081126
  Receipt Date: 20081119
  Transmission Date: 20090506
  Serious: Yes (Hospitalization)
  Sender: FDA-Public Use
  Company Number: TW-WATSON-2008-06886

PATIENT
  Age: 13 Year
  Sex: Male
  Weight: 67 kg

DRUGS (3)
  1. HYDROCORTISONE ACETATE [Suspect]
     Indication: DERMATITIS ATOPIC
     Dosage: 200 MG, DAILY
     Route: 042
  2. BETAMETHASONE SODIUM PHOSPHATE [Suspect]
     Indication: DERMATITIS ATOPIC
     Dosage: 4-6 MG, DAILY
     Route: 042
  3. BETAMETHASONE SODIUM PHOSPHATE [Suspect]
     Dosage: 4 MG, DAILY
     Route: 042

REACTIONS (2)
  - LEUKOCYTE ALKALINE PHOSPHATASE INCREASED [None]
  - LEUKOCYTOSIS [None]
